FAERS Safety Report 7658431-2 (Version None)
Quarter: 2011Q3

REPORT INFORMATION
  Report Type: 
  Country: None (occurrence: None)
  Receive Date: 20110805
  Receipt Date: 20110728
  Transmission Date: 20111222
  Serious: Yes (Hospitalization)
  Sender: FDA-Public Use
  Company Number: JP-ASTELLAS-2011US004077

PATIENT
  Age: 63 Year
  Sex: Female
  Weight: 34 kg

DRUGS (3)
  1. GEMCITABINE [Suspect]
     Dosage: 500 MG/M2, UNKNOWN/D
     Route: 041
     Dates: start: 20080901, end: 20090901
  2. TARCEVA [Suspect]
     Indication: PANCREATIC CARCINOMA
     Dosage: UNK
     Route: 048
     Dates: start: 20070801
  3. GEMCITABINE [Suspect]
     Indication: PANCREATIC CARCINOMA
     Dosage: UNK
     Route: 041
     Dates: start: 20070801, end: 20080901

REACTIONS (4)
  - INTERSTITIAL LUNG DISEASE [None]
  - CARDIAC FAILURE [None]
  - CHRONIC OBSTRUCTIVE PULMONARY DISEASE [None]
  - ASTHMA [None]
